FAERS Safety Report 6288865-2 (Version None)
Quarter: 2009Q3

REPORT INFORMATION
  Report Type: 
  Country: None (occurrence: None)
  Receive Date: 20090729
  Receipt Date: 20090717
  Transmission Date: 20100115
  Serious: Yes (Life-Threatening)
  Sender: FDA-Public Use
  Company Number: FR-ELI_LILLY_AND_COMPANY-FR200907003670

PATIENT
  Sex: Female

DRUGS (2)
  1. ZYPREXA [Suspect]
     Route: 048
     Dates: start: 20090505, end: 20090505
  2. ACETAMINOPHEN [Concomitant]
     Dosage: 50 G, UNK
     Route: 048
     Dates: start: 20090505, end: 20090505

REACTIONS (6)
  - ABDOMINAL PAIN [None]
  - CYTOLYTIC HEPATITIS [None]
  - INTENTIONAL OVERDOSE [None]
  - NAUSEA [None]
  - SOMNOLENCE [None]
  - VOMITING [None]
